FAERS Safety Report 13668532 (Version 1)
Quarter: 2017Q2

REPORT INFORMATION
  Report Type: Spontaneous
  Country: US (occurrence: US)
  Receive Date: 20170620
  Receipt Date: 20170620
  Transmission Date: 20170830
  Serious: Yes (Hospitalization, Disabling, Other)
  Sender: FDA-Public Use
  Company Number: None

PATIENT
  Age: 87 Year
  Sex: Female
  Weight: 45.4 kg

DRUGS (38)
  1. ATROPINE SULF 1% OPH SOLN 5ML [Suspect]
     Active Substance: ATROPINE SULFATE
     Indication: POSTOPERATIVE CARE
     Dosage: 1 DROP - 1 DROP IN RIGHT EYE - QID
  2. VENTOLIN [Concomitant]
     Active Substance: ALBUTEROL SULFATE
  3. CLOCORTLONE CREAM [Concomitant]
  4. PROBIOTICS [Concomitant]
     Active Substance: PROBIOTICS NOS
  5. ATROPINE SULF 1% OPH SOLN 5ML [Suspect]
     Active Substance: ATROPINE SULFATE
     Dosage: 1 DROP - 1 DROP IN RIGHT EYE - QID
  6. TRIAMCINOLONE OINTMENT [Concomitant]
  7. TUMS [Concomitant]
     Active Substance: CALCIUM CARBONATE
  8. GINKGO BILOBA [Concomitant]
     Active Substance: GINKGO
  9. TEA [Concomitant]
     Active Substance: TEA LEAF
  10. SPIRIT OF AMONIA PEROXIDE [Concomitant]
  11. SIMBRINZA [Suspect]
     Active Substance: BRIMONIDINE TARTRATE\BRINZOLAMIDE
     Indication: RETINAL DETACHMENT
     Dosage: 1 DROPP - BID - 12 HOURS APART - 1 DROP IN EYE
  12. BRIMONIDINE 0.2% OPTH SOL 5ML [Suspect]
     Active Substance: BRIMONIDINE TARTRATE
     Indication: POSTOPERATIVE CARE
     Dosage: 1 DROP LEFT EYE - FROM DROPPER - BID
     Dates: start: 20160505, end: 20170601
  13. WITCH HAZEL. [Concomitant]
     Active Substance: WITCH HAZEL
  14. NELIMED [Concomitant]
  15. BILBERRY [Concomitant]
     Active Substance: BILBERRY
  16. IMODIUM [Concomitant]
     Active Substance: LOPERAMIDE HYDROCHLORIDE
  17. SIMBRINZA [Suspect]
     Active Substance: BRIMONIDINE TARTRATE\BRINZOLAMIDE
     Indication: POSTOPERATIVE CARE
     Dosage: 1 DROPP - BID - 12 HOURS APART - 1 DROP IN EYE
  18. PREDNISOLONE AC 1% OPTH SUSP 5ML [Suspect]
     Active Substance: PREDNISOLONE ACETATE
     Indication: RETINAL DETACHMENT
     Dosage: 1 DROP - EYE DROPPER
     Dates: start: 20170503, end: 20170505
  19. MAGNESIUM [Concomitant]
     Active Substance: MAGNESIUM
  20. VITAMIN B12 [Concomitant]
     Active Substance: CYANOCOBALAMIN
  21. ZYRTEC [Concomitant]
     Active Substance: CETIRIZINE HYDROCHLORIDE
  22. LEMON ZINGLER TEA [Concomitant]
  23. TIMOLOL MALEATE 0.5% OPTH SOLN 5ML [Suspect]
     Active Substance: TIMOLOL MALEATE
     Indication: RETINAL DETACHMENT
     Dosage: 1 DROP BOTH EYES - BY DROPPER - BID
     Dates: start: 20160505, end: 20160505
  24. COMBIGAN [Suspect]
     Active Substance: BRIMONIDINE TARTRATE\TIMOLOL MALEATE
     Indication: INTRAOCULAR PRESSURE TEST ABNORMAL
     Dosage: 1 DROP EYE DROPS BID EVERY 12 HOURS
     Dates: start: 20170505, end: 20170505
  25. LEVOTHYROXIN [Concomitant]
     Active Substance: LEVOTHYROXINE
  26. HYDROCORTISONE VALERATE. [Concomitant]
     Active Substance: HYDROCORTISONE VALERATE
  27. EPSON SALT [Concomitant]
  28. BLINK VASELINE [Concomitant]
  29. TIMOLOL MALEATE 0.5% OPTH SOLN 5ML [Suspect]
     Active Substance: TIMOLOL MALEATE
     Indication: POSTOPERATIVE CARE
     Dosage: 1 DROP BOTH EYES - BY DROPPER - BID
     Dates: start: 20160505, end: 20160505
  30. BRIMONIDINE 0.2% OPTH SOL 5ML [Suspect]
     Active Substance: BRIMONIDINE TARTRATE
     Indication: RETINAL DETACHMENT
     Dosage: 1 DROP LEFT EYE - FROM DROPPER - BID
     Dates: start: 20160505, end: 20170601
  31. PREDNISOLONE AC 1% OPTH SUSP 5ML [Suspect]
     Active Substance: PREDNISOLONE ACETATE
     Indication: POSTOPERATIVE CARE
     Dosage: 1 DROP - EYE DROPPER
     Dates: start: 20170503, end: 20170505
  32. LUMIGAN [Suspect]
     Active Substance: BIMATOPROST
     Indication: RETINAL DETACHMENT
     Dosage: 1 DROP - BOTH EYES AT BED TIME - EYE DROPPER
     Dates: start: 20160404, end: 20160605
  33. LUMIGAN [Suspect]
     Active Substance: BIMATOPROST
     Indication: POSTOPERATIVE CARE
     Dosage: 1 DROP - BOTH EYES AT BED TIME - EYE DROPPER
     Dates: start: 20160404, end: 20160605
  34. CYCLOPENTOLATE HYDROCHLORIDE 1% OPTH SOL 15ML [Suspect]
     Active Substance: CYCLOPENTOLATE HYDROCHLORIDE
     Indication: RETINAL DETACHMENT
     Dosage: 1 DROP BID - EYE DROPS
     Dates: start: 20160202, end: 20160607
  35. PEPCID [Concomitant]
     Active Substance: FAMOTIDINE
  36. TYLENOL [Concomitant]
     Active Substance: ACETAMINOPHEN
  37. CENTRUM SILVER [Concomitant]
     Active Substance: MINERALS\VITAMINS
  38. SELENIUM [Concomitant]
     Active Substance: SELENIUM

REACTIONS (7)
  - Hypersensitivity [None]
  - Weight decreased [None]
  - Muscular weakness [None]
  - Oropharyngeal pain [None]
  - Skin discolouration [None]
  - Diplopia [None]
  - Vision blurred [None]

NARRATIVE: CASE EVENT DATE: 20170505
